FAERS Safety Report 16828022 (Version 1)
Quarter: 2019Q3

REPORT INFORMATION
  Report Type: Report from Study
  Country: None (occurrence: BR)
  Receive Date: 20190919
  Receipt Date: 20190919
  Transmission Date: 20191005
  Serious: Yes (Other)
  Sender: FDA-Public Use
  Company Number: BR-ABBVIE-19K-020-2929936-00

PATIENT
  Sex: Female

DRUGS (1)
  1. HUMIRA [Suspect]
     Active Substance: ADALIMUMAB
     Indication: RHEUMATOID ARTHRITIS
     Route: 058
     Dates: start: 20190111

REACTIONS (7)
  - Fear [Unknown]
  - Pyrexia [Unknown]
  - Arthritis [Unknown]
  - Pain [Unknown]
  - Visual impairment [Unknown]
  - Ocular hyperaemia [Unknown]
  - Therapeutic product effect incomplete [Unknown]
